FAERS Safety Report 10109204 (Version 1)
Quarter: 2014Q2

REPORT INFORMATION
  Report Type: Spontaneous
  Country: US (occurrence: None)
  Receive Date: 20140421
  Receipt Date: 20140421
  Transmission Date: 20141212
  Serious: No
  Sender: FDA-Public Use
  Company Number: AEGR000300

PATIENT
  Age: 60 Year
  Sex: Female
  Weight: 62.1 kg

DRUGS (1)
  1. JUXTAPID(LOMITAPID)CAPSULE [Suspect]
     Indication: TYPE IIA HYPERLIPIDAEMIA
     Dates: start: 20130523, end: 2013

REACTIONS (4)
  - Musculoskeletal discomfort [None]
  - Pain in extremity [None]
  - Myalgia [None]
  - Inappropriate schedule of drug administration [None]
